FAERS Safety Report 19477842 (Version 2)
Quarter: 2024Q1

REPORT INFORMATION
  Report Type: Report from Study
  Country: US (occurrence: US)
  Receive Date: 20210630
  Receipt Date: 20240315
  Transmission Date: 20240410
  Serious: Yes (Other)
  Sender: FDA-Public Use
  Company Number: US-TAKEDA-US201941283

PATIENT
  Age: 55 Year
  Sex: Female
  Weight: 51 kg

DRUGS (7)
  1. HUMAN IMMUNOGLOBULIN G [Suspect]
     Active Substance: HUMAN IMMUNOGLOBULIN G
     Indication: Primary immunodeficiency syndrome
     Dosage: 3 GRAM, 3/WEEK
     Route: 058
     Dates: start: 20240226
  2. HUMAN IMMUNOGLOBULIN G [Suspect]
     Active Substance: HUMAN IMMUNOGLOBULIN G
     Indication: Rheumatoid arthritis
  3. GAMMAGARD LIQUID [Suspect]
     Active Substance: HUMAN IMMUNOGLOBULIN G
     Indication: Immunodeficiency common variable
     Dosage: UNK
     Route: 065
  4. COVID-19 VACCINE NOS [Suspect]
     Active Substance: COVID-19 VACCINE NOS
     Indication: Product used for unknown indication
     Dosage: UNK
     Route: 065
  5. EPINEPHRINE [Concomitant]
     Active Substance: EPINEPHRINE
     Dosage: UNK
     Route: 065
  6. LIDOCAINE [Concomitant]
     Active Substance: LIDOCAINE
     Dosage: UNK
     Route: 065
  7. LIDOCAINE\PRILOCAINE [Concomitant]
     Active Substance: LIDOCAINE\PRILOCAINE
     Dosage: UNK
     Route: 065

REACTIONS (5)
  - Rheumatoid arthritis [Unknown]
  - Therapeutic response unexpected [Unknown]
  - Sinusitis [Unknown]
  - Fatigue [Unknown]
  - Product use in unapproved indication [Unknown]

NARRATIVE: CASE EVENT DATE: 20240226
